FAERS Safety Report 6973876-1 (Version None)
Quarter: 2010Q3

REPORT INFORMATION
  Report Type: 
  Country: None (occurrence: None)
  Receive Date: 20100909
  Receipt Date: 20100827
  Transmission Date: 20110219
  Serious: Yes (Other)
  Sender: FDA-Public Use
  Company Number: B0673634A

PATIENT
  Age: 54 Year
  Sex: Male

DRUGS (1)
  1. CLAMOXYL DUO FORTE [Suspect]
     Route: 048
     Dates: start: 20100810, end: 20100820

REACTIONS (2)
  - CHROMATURIA [None]
  - HEPATIC ENZYME INCREASED [None]
